FAERS Safety Report 14987655 (Version 1)
Quarter: 2018Q2

REPORT INFORMATION
  Report Type: Spontaneous
  Country: GB (occurrence: GB)
  Receive Date: 20180608
  Receipt Date: 20180608
  Transmission Date: 20180711
  Serious: Yes (Hospitalization, Other)
  Sender: FDA-Public Use
  Company Number: GB-TEVA-2018-GB-902386

PATIENT
  Age: 82 Year
  Sex: Female
  Weight: 76.2 kg

DRUGS (8)
  1. HYDROXOCOBALAMIN [Concomitant]
     Active Substance: HYDROXOCOBALAMIN
     Dosage: NOTES FOR PATIENT: NEXT DUE 27/1/18?1MG/ML
     Dates: start: 20171221
  2. METFORMIN [Concomitant]
     Active Substance: METFORMIN HYDROCHLORIDE
     Dosage: 2000 MILLIGRAM DAILY; MORNING AND AFTERNOON
     Dates: start: 20180111
  3. NITROFURANTOIN. [Concomitant]
     Active Substance: NITROFURANTOIN
     Dosage: 200 MILLIGRAM DAILY;
     Dates: start: 20180115
  4. FENBID [Concomitant]
     Active Substance: IBUPROFEN
     Dosage: 3 DOSAGE FORMS DAILY; APPLY TO THE AFFECTED AREA(S)
     Route: 065
     Dates: start: 20171221
  5. MAGNESIUM HYDROXIDE. [Concomitant]
     Active Substance: MAGNESIUM HYDROXIDE
     Dosage: 20 ML DAILY; 7.45-8.35%
     Dates: start: 20171221
  6. GLICLAZIDE [Concomitant]
     Active Substance: GLICLAZIDE
     Dosage: 40 MILLIGRAM DAILY;
     Route: 065
     Dates: start: 20180111
  7. CASSIA [Concomitant]
     Dosage: 20 ML DAILY; 7.5MG/5ML
     Route: 065
     Dates: start: 20171221
  8. WARFARIN [Suspect]
     Active Substance: WARFARIN
     Route: 048
     Dates: start: 20080213

REACTIONS (2)
  - Rectal haemorrhage [Recovered/Resolved]
  - International normalised ratio increased [Unknown]

NARRATIVE: CASE EVENT DATE: 20180116
